FAERS Safety Report 24999175 (Version 2)
Quarter: 2025Q2

REPORT INFORMATION
  Report Type: Spontaneous
  Country: US (occurrence: US)
  Receive Date: 20250222
  Receipt Date: 20250630
  Transmission Date: 20250716
  Serious: No
  Sender: SANOFI AVENTIS
  Company Number: US-SA-2025SA045500

PATIENT
  Age: 5 Year
  Sex: Female
  Weight: 17.73 kg

DRUGS (5)
  1. DUPIXENT [Suspect]
     Active Substance: DUPILUMAB
     Indication: Dermatitis atopic
     Dosage: 300 MG, Q3W
  2. DUPIXENT [Suspect]
     Active Substance: DUPILUMAB
     Dosage: 300 MG, Q4W
     Route: 058
     Dates: end: 2025
  3. DUPIXENT [Suspect]
     Active Substance: DUPILUMAB
     Dates: start: 20250530
  4. TRIAMCINOLONE ACETONIDE [Concomitant]
     Active Substance: TRIAMCINOLONE ACETONIDE
  5. TACROLIMUS [Concomitant]
     Active Substance: TACROLIMUS

REACTIONS (9)
  - Dry skin [Not Recovered/Not Resolved]
  - Rebound atopic dermatitis [Unknown]
  - Skin fissures [Unknown]
  - Erythema [Unknown]
  - Pruritus [Unknown]
  - Pruritus [Not Recovered/Not Resolved]
  - Ocular hyperaemia [Not Recovered/Not Resolved]
  - Condition aggravated [Not Recovered/Not Resolved]
  - Inappropriate schedule of product administration [Unknown]

NARRATIVE: CASE EVENT DATE: 20241001
